FAERS Safety Report 18620307 (Version 2)
Quarter: 2020Q4

REPORT INFORMATION
  Report Type: Spontaneous
  Country: US (occurrence: US)
  Receive Date: 20201215
  Receipt Date: 20201223
  Transmission Date: 20210114
  Serious: Yes (Other)
  Sender: FDA-Public Use
  Company Number: US-SERVIER-S20012486

PATIENT

DRUGS (9)
  1. TN UNSPECIFIED [Concomitant]
     Indication: ACUTE LYMPHOCYTIC LEUKAEMIA
     Dosage: 15 MG, ONE DOSE
     Route: 037
     Dates: start: 20201125, end: 20201125
  2. SALINE [Concomitant]
     Active Substance: SODIUM CHLORIDE
     Indication: SUPPORTIVE CARE
     Dosage: 1000 ML, ONE DOSE
     Route: 042
     Dates: start: 20201125, end: 20201125
  3. TN UNSPECIFIED [Concomitant]
     Indication: PREMEDICATION
     Dosage: 80 MG, ONE DOSE
     Route: 042
     Dates: start: 20201125, end: 20201125
  4. ONCASPAR [Suspect]
     Active Substance: PEGASPARGASE
     Dosage: 0.77 ML INFUSED
     Dates: start: 20201207, end: 20201207
  5. ACETAMINOPHEN. [Concomitant]
     Active Substance: ACETAMINOPHEN
     Indication: PREMEDICATION
     Dosage: 650 MG, ONE DOSE
     Route: 048
     Dates: start: 20201125, end: 20201125
  6. TN UNSPECIFIED [Concomitant]
     Indication: PREMEDICATION
     Dosage: 20 MG, ONE DOSE
     Route: 048
     Dates: start: 20201125, end: 20201125
  7. TN UNSPECIFIED [Concomitant]
     Indication: ACUTE LYMPHOCYTIC LEUKAEMIA
     Dosage: 2 MG, ONE DOSE
     Route: 042
     Dates: start: 20201125, end: 20201125
  8. ONCASPAR [Suspect]
     Active Substance: PEGASPARGASE
     Indication: ACUTE LYMPHOCYTIC LEUKAEMIA
     Dosage: 1485 IU (30 ML INFUSED)
     Route: 042
     Dates: start: 20201125, end: 20201125
  9. TN UNSPECIFIED [Concomitant]
     Indication: PREMEDICATION
     Dosage: 50 MG, ONE DOSE
     Route: 048
     Dates: start: 20201125, end: 20201125

REACTIONS (1)
  - Hypersensitivity [Recovered/Resolved]

NARRATIVE: CASE EVENT DATE: 20201125
